FAERS Safety Report 9821587 (Version 1)
Quarter: 2014Q1

REPORT INFORMATION
  Report Type: Spontaneous
  Country: KR (occurrence: KR)
  Receive Date: 20140116
  Receipt Date: 20140116
  Transmission Date: 20141002
  Serious: Yes (Death)
  Sender: FDA-Public Use
  Company Number: KR-OTSUKA-JP-2014-10126

PATIENT
  Sex: 0

DRUGS (1)
  1. SAMSCA [Suspect]
     Indication: HYPONATRAEMIA
     Dosage: 15 MG MILLIGRAM(S), UNK
     Route: 048

REACTIONS (1)
  - Cardiac failure [Fatal]
